FAERS Safety Report 18733082 (Version 1)
Quarter: 2021Q1

REPORT INFORMATION
  Report Type: Spontaneous
  Country: US (occurrence: US)
  Receive Date: 20210112
  Receipt Date: 20210112
  Transmission Date: 20210419
  Serious: No
  Sender: FDA-Public Use
  Company Number: US-JNJFOC-20210108693

PATIENT
  Sex: Male

DRUGS (12)
  1. SENOKOT [Concomitant]
     Active Substance: SENNOSIDES
     Indication: CONSTIPATION
  2. LIDOCAINE. [Concomitant]
     Active Substance: LIDOCAINE
     Indication: MUSCULOSKELETAL CHEST PAIN
  3. AZO [Concomitant]
     Active Substance: PHENAZOPYRIDINE HYDROCHLORIDE
  4. BISACODYL. [Concomitant]
     Active Substance: BISACODYL
  5. ADVIL [Concomitant]
     Active Substance: IBUPROFEN
  6. SENNA LEAF [Concomitant]
     Active Substance: SENNA LEAF
     Indication: CONSTIPATION
  7. PYRIDIUM [Concomitant]
     Active Substance: PHENAZOPYRIDINE
  8. OXYCODONE [Concomitant]
     Active Substance: OXYCODONE
     Indication: HALLUCINATION
  9. TYLENOL [Concomitant]
     Active Substance: ACETAMINOPHEN
  10. DULCOLAX (BISACODYL) [Concomitant]
     Active Substance: BISACODYL
  11. OXYCODONE [Concomitant]
     Active Substance: OXYCODONE
     Indication: NIGHTMARE
  12. IMODIUM MULTI?SYMPTOM RELIEF [Suspect]
     Active Substance: DIMETHICONE\LOPERAMIDE HYDROCHLORIDE
     Indication: DIARRHOEA
     Route: 048
     Dates: start: 20210103

REACTIONS (1)
  - Diarrhoea [Unknown]

NARRATIVE: CASE EVENT DATE: 20210103
